FAERS Safety Report 20377434 (Version 1)
Quarter: 2022Q1

REPORT INFORMATION
  Report Type: Spontaneous
  Country: BR (occurrence: BR)
  Receive Date: 20220126
  Receipt Date: 20220126
  Transmission Date: 20220424
  Serious: Yes (Other)
  Sender: FDA-Public Use
  Company Number: BR-AstraZeneca-2022A024120

PATIENT

DRUGS (1)
  1. ZOLADEX [Suspect]
     Active Substance: GOSERELIN ACETATE
     Indication: Breast cancer female
     Dosage: 3.6 MG, MONTHLY
     Route: 058
     Dates: start: 20190303, end: 20211222

REACTIONS (3)
  - Puncture site bruise [Unknown]
  - Application site pain [Unknown]
  - Application site haemorrhage [Unknown]
